FAERS Safety Report 19501616 (Version 1)
Quarter: 2021Q3

REPORT INFORMATION
  Report Type: Spontaneous
  Country: US (occurrence: US)
  Receive Date: 20210707
  Receipt Date: 20210707
  Transmission Date: 20211014
  Serious: Yes (Death)
  Sender: FDA-Public Use
  Company Number: US-DSJP-DSJ-2021-120571

PATIENT
  Sex: Male

DRUGS (6)
  1. TOZINAMERAN. [Suspect]
     Active Substance: TOZINAMERAN
     Dosage: 2 DF, SINGLE
     Route: 030
     Dates: start: 20210202, end: 20210202
  2. ASPIRIN                            /00002701/ [Concomitant]
     Active Substance: ASPIRIN
     Dosage: 81 MG, QD
  3. PRASUGREL HYDROCHLORIDE [Suspect]
     Active Substance: PRASUGREL HYDROCHLORIDE
     Indication: PRODUCT USED FOR UNKNOWN INDICATION
     Dosage: UNK
     Route: 065
     Dates: start: 2017, end: 2017
  4. TOZINAMERAN. [Suspect]
     Active Substance: TOZINAMERAN
     Indication: COVID-19 IMMUNISATION
     Dosage: UNK UNK, SINGLE
     Route: 030
     Dates: start: 20210112, end: 20210112
  5. CETIRIZINE [Concomitant]
     Active Substance: CETIRIZINE HYDROCHLORIDE
     Indication: HYPERSENSITIVITY
     Dosage: 10 MG, QD
     Route: 065
  6. AMLODIPINE [Concomitant]
     Active Substance: AMLODIPINE BESYLATE
     Indication: HYPERTENSION
     Dosage: 5 MG, QD
     Route: 065

REACTIONS (9)
  - Pulmonary embolism [Fatal]
  - Sinusitis [Fatal]
  - Fatigue [Fatal]
  - Feeling cold [Fatal]
  - Abdominal discomfort [Fatal]
  - Weight decreased [Fatal]
  - Malaise [Fatal]
  - Respiratory disorder [Fatal]
  - Dyspnoea [Unknown]

NARRATIVE: CASE EVENT DATE: 2017
